FAERS Safety Report 5874535-9 (Version None)
Quarter: 2008Q3

REPORT INFORMATION
  Report Type: 
  Country: None (occurrence: None)
  Receive Date: 20080909
  Receipt Date: 20080901
  Transmission Date: 20090109
  Serious: Yes (Hospitalization)
  Sender: FDA-Public Use
  Company Number: PHHY2008DE19216

PATIENT
  Sex: Female

DRUGS (8)
  1. FEMARA [Suspect]
     Indication: BREAST CANCER
     Dosage: 1 DAILY
     Route: 048
     Dates: start: 20050801
  2. SIMVASTATIN [Concomitant]
     Indication: BLOOD CHOLESTEROL INCREASED
     Dosage: UNK
     Route: 048
     Dates: start: 20050201, end: 20060101
  3. INEGY [Concomitant]
     Indication: BLOOD CHOLESTEROL INCREASED
     Dosage: UNK
     Route: 048
     Dates: start: 20060101
  4. NEXIUM [Concomitant]
     Dosage: UNK
     Route: 048
     Dates: start: 20050201, end: 20060101
  5. OMEPRAZOLE [Concomitant]
     Dosage: UNK
     Route: 048
     Dates: start: 20060101
  6. AMLODIPINE [Concomitant]
     Indication: HYPERTENSION
     Dosage: UNK
     Route: 048
     Dates: start: 20060101
  7. CORDINATE [Concomitant]
     Indication: HYPERTENSION
     Dosage: UNK
     Route: 048
     Dates: start: 20060101, end: 20060101
  8. VIGANTOLETTEN ^MERCK^ [Concomitant]

REACTIONS (5)
  - EYE DISORDER [None]
  - EYE PAIN [None]
  - OPTIC ISCHAEMIC NEUROPATHY [None]
  - VISUAL ACUITY REDUCED [None]
  - VISUAL IMPAIRMENT [None]
